FAERS Safety Report 18879075 (Version 1)
Quarter: 2021Q1

REPORT INFORMATION
  Report Type: Other
  Country: BE (occurrence: BE)
  Receive Date: 20210211
  Receipt Date: 20210211
  Transmission Date: 20210420
  Serious: No
  Sender: FDA-Public Use
  Company Number: BE-ROCHE-2765474

PATIENT
  Sex: Female
  Weight: 94 kg

DRUGS (33)
  1. SOLU?MEDROL [Concomitant]
     Active Substance: METHYLPREDNISOLONE SODIUM SUCCINATE
     Dosage: ONCE BEFORE INFUSION
     Route: 042
     Dates: start: 20200728, end: 20200728
  2. ACYCLOVIR. [Concomitant]
     Active Substance: ACYCLOVIR
     Route: 048
     Dates: start: 20190708, end: 20190708
  3. CETIRIZINE [Concomitant]
     Active Substance: CETIRIZINE HYDROCHLORIDE
     Dosage: ONCE BEFORE INFUSION
     Route: 048
     Dates: start: 20200728, end: 20200728
  4. CETIRIZINE [Concomitant]
     Active Substance: CETIRIZINE HYDROCHLORIDE
     Dosage: ONCE BEFORE INFUSION
     Route: 048
     Dates: start: 20210205, end: 20210205
  5. PERFUSALGAN [Concomitant]
     Active Substance: ACETAMINOPHEN
     Dosage: ONCE BEFORE INFUSION
     Route: 042
     Dates: start: 20210205, end: 20210205
  6. SOLU?MEDROL [Concomitant]
     Active Substance: METHYLPREDNISOLONE SODIUM SUCCINATE
     Dosage: ONCE BEFORE INFUSION
     Route: 042
     Dates: start: 20190723, end: 20190723
  7. MELATONINE [Concomitant]
     Active Substance: MELATONIN
     Route: 048
     Dates: start: 201909, end: 20201223
  8. VESICARE [Concomitant]
     Active Substance: SOLIFENACIN SUCCINATE
     Route: 048
     Dates: start: 20200827
  9. PARACETAMOL [Concomitant]
     Active Substance: ACETAMINOPHEN
     Dosage: ONCE BEFORE INFUSION
     Route: 042
     Dates: start: 20190723, end: 20190723
  10. CAFEINE [Concomitant]
     Active Substance: CAFFEINE
     Route: 048
     Dates: start: 201910
  11. PERFUSALGAN [Concomitant]
     Active Substance: ACETAMINOPHEN
     Dosage: ONCE BEFORE INFUSION
     Route: 042
     Dates: start: 20200728, end: 20200728
  12. SOLU?MEDROL [Concomitant]
     Active Substance: METHYLPREDNISOLONE SODIUM SUCCINATE
     Dosage: ONCE BEFORE INFUSION
     Route: 042
     Dates: start: 20190709, end: 20190709
  13. ACYCLOVIR. [Concomitant]
     Active Substance: ACYCLOVIR
     Route: 048
     Dates: start: 20190709
  14. RIBOFLAVINE [Concomitant]
     Active Substance: RIBOFLAVIN
     Route: 048
     Dates: start: 20191216, end: 20200728
  15. IBUPROFEN. [Concomitant]
     Active Substance: IBUPROFEN
     Route: 048
     Dates: start: 201910
  16. SOLU?MEDROL [Concomitant]
     Active Substance: METHYLPREDNISOLONE SODIUM SUCCINATE
     Dosage: ONCE BEFORE INFUSION
     Route: 042
     Dates: start: 20200124, end: 20200124
  17. ZOLPIDEM [Concomitant]
     Active Substance: ZOLPIDEM TARTRATE
     Route: 048
     Dates: start: 20151214
  18. UTROGESTAN [Concomitant]
     Active Substance: PROGESTERONE
     Route: 048
     Dates: start: 20160201
  19. PARACETAMOL [Concomitant]
     Active Substance: ACETAMINOPHEN
     Dosage: ONCE BEFORE INFUSION
     Route: 042
     Dates: start: 201910
  20. OCRELIZUMAB. [Suspect]
     Active Substance: OCRELIZUMAB
     Indication: PRIMARY PROGRESSIVE MULTIPLE SCLEROSIS
     Dosage: 250 ML
     Route: 042
     Dates: start: 20190709
  21. CETIRIZINE [Concomitant]
     Active Substance: CETIRIZINE HYDROCHLORIDE
     Dosage: ONCE BEFORE INFUSION
     Route: 048
     Dates: start: 20190709, end: 20190709
  22. SOLU?MEDROL [Concomitant]
     Active Substance: METHYLPREDNISOLONE SODIUM SUCCINATE
     Dosage: ONCE BEFORE INFUSION
     Route: 042
     Dates: start: 20210205, end: 20210205
  23. DICLOFENAC [Concomitant]
     Active Substance: DICLOFENAC
     Route: 048
     Dates: start: 20180711, end: 20210205
  24. TOPAMAX [Concomitant]
     Active Substance: TOPIRAMATE
     Route: 048
     Dates: start: 20200309
  25. PARACETAMOL [Concomitant]
     Active Substance: ACETAMINOPHEN
     Dosage: ONCE BEFORE INFUSION
     Route: 042
     Dates: start: 20190709, end: 20190709
  26. CETIRIZINE [Concomitant]
     Active Substance: CETIRIZINE HYDROCHLORIDE
     Dosage: ONCE BEFORE INFUSION
     Route: 048
     Dates: start: 20200124, end: 20200124
  27. GLATIRAMER ACETATE. [Concomitant]
     Active Substance: GLATIRAMER ACETATE
     Dates: start: 201802, end: 201906
  28. CETIRIZINE [Concomitant]
     Active Substance: CETIRIZINE HYDROCHLORIDE
     Dosage: ONCE BEFORE INFUSION
     Route: 048
     Dates: start: 20190723, end: 20190723
  29. PERFUSALGAN [Concomitant]
     Active Substance: ACETAMINOPHEN
     Dosage: ONCE BEFORE INFUSION
     Route: 042
     Dates: start: 20200124, end: 20200124
  30. SOLU?MEDROL [Concomitant]
     Active Substance: METHYLPREDNISOLONE SODIUM SUCCINATE
     Dosage: ONCE BEFORE INFUSION
     Route: 042
     Dates: start: 20200124, end: 20200124
  31. OESTROGEL [Concomitant]
     Active Substance: ESTRADIOL
     Dates: start: 20160201
  32. MAGNESIUM MALATE. [Concomitant]
     Active Substance: MAGNESIUM MALATE
     Route: 048
  33. IBUPROFEN. [Concomitant]
     Active Substance: IBUPROFEN
     Route: 048
     Dates: start: 2015, end: 20210205

REACTIONS (1)
  - Genital herpes simplex [Not Recovered/Not Resolved]
